FAERS Safety Report 22623775 (Version 3)
Quarter: 2025Q3

REPORT INFORMATION
  Report Type: Spontaneous
  Country: CA (occurrence: CA)
  Receive Date: 20230621
  Receipt Date: 20250805
  Transmission Date: 20251021
  Serious: Yes (Other)
  Sender: AUROBINDO
  Company Number: CA-MLMSERVICE-20221212-3971651-1

PATIENT
  Age: 37 Year
  Sex: Male

DRUGS (5)
  1. PAROXETINE [Suspect]
     Active Substance: PAROXETINE
     Indication: Obsessive-compulsive disorder
     Route: 065
  2. PAROXETINE [Suspect]
     Active Substance: PAROXETINE
     Indication: Misophonia
     Route: 065
  3. FLUVOXAMINE [Suspect]
     Active Substance: FLUVOXAMINE
     Indication: Obsessive-compulsive disorder
     Route: 065
  4. FLUVOXAMINE [Suspect]
     Active Substance: FLUVOXAMINE
     Indication: Misophonia
  5. CLOMIPRAMINE [Suspect]
     Active Substance: CLOMIPRAMINE
     Indication: Product used for unknown indication
     Route: 065

REACTIONS (4)
  - Delirium [Recovered/Resolved]
  - Sexual dysfunction [Recovered/Resolved]
  - Rash [Recovered/Resolved]
  - Adverse drug reaction [Unknown]
